FAERS Safety Report 8207997-2 (Version None)
Quarter: 2012Q1

REPORT INFORMATION
  Report Type: 
  Country: None (occurrence: None)
  Receive Date: 20120314
  Receipt Date: 20120308
  Transmission Date: 20120608
  Serious: Yes (Hospitalization, Other)
  Sender: FDA-Public Use
  Company Number: DE-BAYER-2012-002672

PATIENT
  Age: 63 Year
  Sex: Male
  Weight: 75 kg

DRUGS (4)
  1. SORAFENIB (RAF KINASE INHIBITOR) [Suspect]
     Indication: HEPATIC NEOPLASM MALIGNANT
     Dosage: 400 MG, DAILY
     Dates: start: 20110210, end: 20110302
  2. SORAFENIB (RAF KINASE INHIBITOR) [Suspect]
     Dosage: 600 MG, DAILY
     Dates: start: 20110829, end: 20111214
  3. SORAFENIB (RAF KINASE INHIBITOR) [Suspect]
     Dosage: 800 MG, DAILY
     Dates: start: 20110303, end: 20110707
  4. SORAFENIB (RAF KINASE INHIBITOR) [Suspect]
     Dosage: 400 MG, DAILY
     Dates: start: 20110805, end: 20110828

REACTIONS (2)
  - HEPATIC ENCEPHALOPATHY [None]
  - DIARRHOEA [None]
